FAERS Safety Report 8181828-1 (Version None)
Quarter: 2012Q1

REPORT INFORMATION
  Report Type: 
  Country: None (occurrence: None)
  Receive Date: 20120302
  Receipt Date: 20120227
  Transmission Date: 20120608
  Serious: Yes (Other)
  Sender: FDA-Public Use
  Company Number: US-BAYER-2012-019749

PATIENT
  Age: 91 Year
  Sex: Male

DRUGS (2)
  1. ASPIRIN [Suspect]
     Dosage: UNK
  2. PLAVIX [Suspect]
     Indication: STENT PLACEMENT
     Dosage: DAILY DOSE 75 MG
     Route: 048
     Dates: start: 20111201

REACTIONS (2)
  - PRURITUS [None]
  - HAEMORRHAGE [None]
